FAERS Safety Report 26135486 (Version 1)
Quarter: 2025Q4

REPORT INFORMATION
  Report Type: Spontaneous
  Country: US (occurrence: US)
  Receive Date: 20251209
  Receipt Date: 20251209
  Transmission Date: 20260118
  Serious: No
  Sender: NOVEN
  Company Number: US-NOVEN PHARMACEUTICALS, INC.-2025-NOV-US001314

PATIENT
  Sex: Female

DRUGS (2)
  1. ESTRADIOL [Suspect]
     Active Substance: ESTRADIOL
     Indication: Menopause
     Dosage: UNKNOWN, UNK
     Route: 048
  2. ESTRADIOL [Suspect]
     Active Substance: ESTRADIOL
     Dosage: 0.075 MG, 2/WEEK
     Route: 062

REACTIONS (3)
  - Skin reaction [Unknown]
  - Skin burning sensation [Unknown]
  - Hot flush [Unknown]
